FAERS Safety Report 10567897 (Version 2)
Quarter: 2014Q4

REPORT INFORMATION
  Report Type: Spontaneous
  Country: US (occurrence: US)
  Receive Date: 20141106
  Receipt Date: 20141106
  Transmission Date: 20150529
  Serious: No
  Sender: FDA-Public Use
  Company Number: US-LEO PHARMA-229476

PATIENT
  Sex: Female

DRUGS (1)
  1. PICATO [Suspect]
     Active Substance: INGENOL MEBUTATE
     Indication: ROSACEA
     Dates: start: 20140822, end: 20140824

REACTIONS (3)
  - Pupils unequal [Recovered/Resolved]
  - Product use issue [Unknown]
  - Vision blurred [Recovered/Resolved]
